FAERS Safety Report 5949837-8 (Version None)
Quarter: 2008Q4

REPORT INFORMATION
  Report Type: 
  Country: None (occurrence: None)
  Receive Date: 20081112
  Receipt Date: 20081103
  Transmission Date: 20090506
  Serious: Yes (Hospitalization)
  Sender: FDA-Public Use
  Company Number: US-BIOGENIDEC-2008BI021222

PATIENT
  Sex: Female

DRUGS (2)
  1. AVONEX [Suspect]
     Indication: DRUG USE FOR UNKNOWN INDICATION
     Route: 030
     Dates: end: 20080701
  2. PREDNISONE TAB [Concomitant]
     Indication: DRUG USE FOR UNKNOWN INDICATION
     Dates: start: 20080701

REACTIONS (9)
  - BLOOD SODIUM DECREASED [None]
  - FALL [None]
  - FATIGUE [None]
  - FLUID RETENTION [None]
  - HEAD INJURY [None]
  - INSOMNIA [None]
  - JOINT INJURY [None]
  - LOSS OF CONSCIOUSNESS [None]
  - RESPIRATORY THERAPY [None]
